FAERS Safety Report 18834211 (Version 1)
Quarter: 2021Q1

REPORT INFORMATION
  Report Type: Spontaneous
  Country: US (occurrence: US)
  Receive Date: 20210203
  Receipt Date: 20210203
  Transmission Date: 20210419
  Serious: Yes (Other)
  Sender: FDA-Public Use
  Company Number: None

PATIENT
  Age: 32 Year
  Sex: Female
  Weight: 61.65 kg

DRUGS (1)
  1. DROSPIRENONE AND ETHINYL ESTRADIOL TABLETS 3MG/0.02MG [Suspect]
     Active Substance: DROSPIRENONE\ETHINYL ESTRADIOL
     Indication: CONTRACEPTION
     Dosage: ?          QUANTITY:1 TABLET(S);?
     Route: 048
     Dates: start: 20210124, end: 20210125

REACTIONS (4)
  - Rash [None]
  - Product substitution issue [None]
  - Product formulation issue [None]
  - Urticaria [None]

NARRATIVE: CASE EVENT DATE: 20210124
